FAERS Safety Report 5303297-9 (Version None)
Quarter: 2007Q2

REPORT INFORMATION
  Report Type: 
  Country: None (occurrence: None)
  Receive Date: 20070420
  Receipt Date: 20070417
  Transmission Date: 20071010
  Serious: Yes (Other)
  Sender: FDA-Public Use
  Company Number: JP-GLAXOSMITHKLINE-B0462182A

PATIENT
  Age: 55 Year
  Sex: Female
  Weight: 43 kg

DRUGS (4)
  1. PAXIL [Suspect]
     Indication: DEPRESSION
     Dosage: 10MG PER DAY
     Route: 048
     Dates: start: 20050601, end: 20050625
  2. SEDIEL [Suspect]
     Indication: DEPRESSION
     Dosage: 10MG TWICE PER DAY
     Route: 048
     Dates: start: 20050601, end: 20050612
  3. SOLANAX [Suspect]
     Indication: DEPRESSION
     Dosage: .2MG TWICE PER DAY
     Route: 048
     Dates: start: 20050601, end: 20050612
  4. UNKNOWN DRUG [Concomitant]
     Route: 065

REACTIONS (3)
  - EOSINOPHILIC PNEUMONIA [None]
  - EYE SWELLING [None]
  - FACE OEDEMA [None]
